FAERS Safety Report 11416232 (Version 1)
Quarter: 2015Q3

REPORT INFORMATION
  Report Type: Spontaneous
  Country: US (occurrence: None)
  Receive Date: 20150824
  Receipt Date: 20150824
  Transmission Date: 20151125
  Serious: Yes (Other)
  Sender: FDA-Public Use
  Company Number: None

PATIENT
  Age: 69 Year
  Sex: Female
  Weight: 95.26 kg

DRUGS (1)
  1. INFLIXIMAB [Suspect]
     Active Substance: INFLIXIMAB
     Indication: PSORIATIC ARTHROPATHY
     Dosage: INFUSION, SIX TO 8 WEEKS
     Route: 042

REACTIONS (3)
  - Pyrexia [None]
  - Swelling [None]
  - Rash [None]

NARRATIVE: CASE EVENT DATE: 20150709
